FAERS Safety Report 25138686 (Version 1)
Quarter: 2025Q1

REPORT INFORMATION
  Report Type: Report from Study
  Country: US (occurrence: US)
  Receive Date: 20250330
  Receipt Date: 20250330
  Transmission Date: 20250409
  Serious: Yes (Other)
  Sender: ABBVIE
  Company Number: US-ABBVIE-6197886

PATIENT
  Age: 66 Year
  Sex: Female

DRUGS (3)
  1. SKYRIZI [Suspect]
     Active Substance: RISANKIZUMAB-RZAA
     Indication: Psoriasis
     Route: 058
     Dates: start: 20240629
  2. SKYRIZI [Suspect]
     Active Substance: RISANKIZUMAB-RZAA
     Indication: Psoriatic arthropathy
  3. SKYRIZI [Suspect]
     Active Substance: RISANKIZUMAB-RZAA
     Indication: Psoriasis

REACTIONS (10)
  - Bursa removal [Recovered/Resolved]
  - Pain in extremity [Not Recovered/Not Resolved]
  - Abscess oral [Recovered/Resolved]
  - Oral surgery [Recovered/Resolved]
  - Headache [Not Recovered/Not Resolved]
  - Rash [Unknown]
  - Joint swelling [Unknown]
  - Skin weeping [Unknown]
  - Skin haemorrhage [Unknown]
  - Skin odour abnormal [Unknown]

NARRATIVE: CASE EVENT DATE: 20240101
